FAERS Safety Report 7471674-6 (Version None)
Quarter: 2011Q2

REPORT INFORMATION
  Report Type: 
  Country: None (occurrence: None)
  Receive Date: 20110502
  Receipt Date: 20110425
  Transmission Date: 20111010
  Serious: Yes (Hospitalization)
  Sender: FDA-Public Use
  Company Number: US-005140

PATIENT
  Sex: Female
  Weight: 54.4316 kg

DRUGS (2)
  1. TRANEXAMIC ACID [Suspect]
     Indication: MENORRHAGIA
     Dosage: (1300 MG TID ORAL)
     Route: 048
     Dates: start: 20110410, end: 20110412
  2. TRANEXAMIC ACID [Suspect]
     Indication: DYSMENORRHOEA
     Dosage: (1300 MG TID ORAL)
     Route: 048
     Dates: start: 20110410, end: 20110412

REACTIONS (8)
  - HYPERSOMNIA [None]
  - FATIGUE [None]
  - HAEMORRHAGE INTRACRANIAL [None]
  - MYDRIASIS [None]
  - VISION BLURRED [None]
  - PARAESTHESIA [None]
  - HYPOAESTHESIA EYE [None]
  - HEADACHE [None]
